FAERS Safety Report 5113133-1 (Version None)
Quarter: 2006Q3

REPORT INFORMATION
  Report Type: 
  Country: None (occurrence: None)
  Receive Date: 20060920
  Receipt Date: 20060901
  Transmission Date: 20061208
  Serious: Yes (Other)
  Sender: FDA-Public Use
  Company Number: US200609001893

PATIENT
  Age: 41 Year
  Sex: Male
  Weight: 84.4 kg

DRUGS (1)
  1. ZYPREXA [Suspect]
     Indication: BIPOLAR I DISORDER
     Dates: start: 20020101, end: 20030101

REACTIONS (7)
  - BLOOD CHOLESTEROL ABNORMAL [None]
  - BLOOD TRIGLYCERIDES INCREASED [None]
  - DIABETES MELLITUS [None]
  - HEPATITIS VIRAL [None]
  - HYPERTENSION [None]
  - METABOLIC DISORDER [None]
  - OBESITY [None]
